FAERS Safety Report 21372485 (Version 1)
Quarter: 2022Q3

REPORT INFORMATION
  Report Type: Spontaneous
  Country: DE (occurrence: DE)
  Receive Date: 20220924
  Receipt Date: 20220924
  Transmission Date: 20221027
  Serious: Yes (Hospitalization)
  Sender: FDA-Public Use
  Company Number: DE-NOVARTISPH-NVSC2022DE211372

PATIENT
  Age: 89 Year
  Sex: Female

DRUGS (6)
  1. TORSEMIDE [Suspect]
     Active Substance: TORSEMIDE
     Indication: Product used for unknown indication
     Dosage: 10 MG, (1-0-0-0)
     Route: 048
  2. SIMVASTATIN [Suspect]
     Active Substance: SIMVASTATIN
     Indication: Product used for unknown indication
     Dosage: 0.5 DOSAGE FORM, QD, (40 MG, 0-0-0.5-0)
     Route: 048
  3. ALLOPURINOL [Suspect]
     Active Substance: ALLOPURINOL
     Indication: Product used for unknown indication
     Dosage: 100 MG, QD (1-0-0-0)
     Route: 048
  4. PHENPROCOUMON [Suspect]
     Active Substance: PHENPROCOUMON
     Indication: Product used for unknown indication
     Dosage: 3 MG, QD
     Route: 048
  5. AMLODIPINE BESYLATE [Concomitant]
     Active Substance: AMLODIPINE BESYLATE
     Indication: Product used for unknown indication
     Dosage: .5 DOSAGE FORM, QD (DOSE: 10 MG, 0-0-0.5-0)
     Route: 048
  6. CANDESARTAN CILEXETIL [Suspect]
     Active Substance: CANDESARTAN CILEXETIL
     Indication: Product used for unknown indication
     Dosage: 16 MG, BID (1-0-1-0)
     Route: 048

REACTIONS (9)
  - Gamma-glutamyltransferase increased [Unknown]
  - Acute kidney injury [Unknown]
  - Malaise [Unknown]
  - Chills [Unknown]
  - Haematuria [Unknown]
  - Hyponatraemia [Unknown]
  - Blood uric acid increased [Unknown]
  - Diarrhoea [Unknown]
  - Nausea [Unknown]
